FAERS Safety Report 7533493-1 (Version None)
Quarter: 2011Q2

REPORT INFORMATION
  Report Type: 
  Country: None (occurrence: None)
  Receive Date: 20110608
  Receipt Date: 20060104
  Transmission Date: 20111010
  Serious: Yes (Life-Threatening, Hospitalization, Other)
  Sender: FDA-Public Use
  Company Number: PHFR2005GB04071

PATIENT
  Sex: Male
  Weight: 58 kg

DRUGS (6)
  1. AMISULPRIDE [Concomitant]
     Indication: PARANOIA
     Dosage: 600 MG, QD
     Route: 048
     Dates: start: 20050214
  2. ZOPICLONE [Concomitant]
     Indication: SCHIZOPHRENIA, PARANOID TYPE
     Dosage: 7.5 MG, QD
     Route: 048
     Dates: start: 20051201, end: 20051212
  3. LORAZEPAM [Concomitant]
     Indication: SCHIZOPHRENIA, PARANOID TYPE
     Dates: start: 20051201
  4. ANTIBIOTICS [Suspect]
     Indication: ANAPHYLACTIC REACTION
     Route: 065
  5. VALPROATE SODIUM [Concomitant]
     Route: 065
  6. CLOZAPINE [Suspect]
     Indication: SCHIZOPHRENIA
     Dosage: UNK, UNK
     Route: 048
     Dates: start: 20051207, end: 20051212

REACTIONS (9)
  - SWOLLEN TONGUE [None]
  - OBSTRUCTIVE AIRWAYS DISORDER [None]
  - HYPOTENSION [None]
  - URTICARIA [None]
  - ANAPHYLACTIC REACTION [None]
  - SWELLING FACE [None]
  - PYREXIA [None]
  - RASH PRURITIC [None]
  - RASH [None]
